FAERS Safety Report 6149004-1 (Version None)
Quarter: 2009Q2

REPORT INFORMATION
  Report Type: 
  Country: None (occurrence: None)
  Receive Date: 20090407
  Receipt Date: 20090326
  Transmission Date: 20091009
  Serious: Yes (Hospitalization)
  Sender: FDA-Public Use
  Company Number: GXKR2009US03938

PATIENT
  Age: 72 Year
  Sex: Female

DRUGS (8)
  1. FAMOTIDINE [Suspect]
     Dosage: 20 MG
  2. ECHINACEA PUPUREA (NGX)(ECHINACEA PURPUREA) [Suspect]
  3. GINKGO BILOBA (NGX)(GINKGO BILOBA) [Suspect]
  4. ESOMEPRAZOLE MAGNESIUM [Suspect]
     Dosage: 40 MG
  5. ALFALFA (MEDICAGO SATIVA) [Suspect]
  6. SIBERIAN GINSENG (ELEUTHEROCOCCUS SENTICOSUS, RUSSIAN GINSENG) [Suspect]
  7. KOREAN GINSENG (KOREAN GINSENG, PANAX GINSENG) [Suspect]
  8. GINGER (ZINGIBER OFFICINALE RHIZOME) [Suspect]

REACTIONS (17)
  - ABDOMINAL DISCOMFORT [None]
  - AMNESIA [None]
  - ANAEMIA [None]
  - ANOREXIA [None]
  - BLOOD ALBUMIN DECREASED [None]
  - CEREBRAL ATROPHY [None]
  - CONFUSIONAL STATE [None]
  - DELIRIUM [None]
  - DEMENTIA [None]
  - DRUG INTERACTION [None]
  - GAIT DISTURBANCE [None]
  - IRON DEFICIENCY [None]
  - MALNUTRITION [None]
  - MEAN CELL VOLUME INCREASED [None]
  - PROTEIN TOTAL DECREASED [None]
  - SINUS TACHYCARDIA [None]
  - VITAMIN B12 DEFICIENCY [None]
